FAERS Safety Report 9016539 (Version 2)
Quarter: 2013Q1

REPORT INFORMATION
  Report Type: Report from Study
  Country: ZA (occurrence: ZA)
  Receive Date: 20130116
  Receipt Date: 20130318
  Transmission Date: 20140127
  Serious: Yes (Death, Hospitalization)
  Sender: FDA-Public Use
  Company Number: ZA-ROCHE-1179973

PATIENT
  Age: 47 Year
  Sex: Male

DRUGS (2)
  1. MIRCERA [Suspect]
     Indication: PRODUCT USED FOR UNKNOWN INDICATION
     Route: 058
     Dates: start: 201010, end: 201302
  2. MIRCERA [Suspect]
     Route: 065
     Dates: start: 201104, end: 201109

REACTIONS (3)
  - Cardiac disorder [Unknown]
  - Hepatic failure [Unknown]
  - Death [Fatal]
